FAERS Safety Report 24628389 (Version 5)
Quarter: 2024Q4

REPORT INFORMATION
  Report Type: Spontaneous
  Country: KR (occurrence: KR)
  Receive Date: 20241117
  Receipt Date: 20241220
  Transmission Date: 20250115
  Serious: No
  Sender: BRISTOL-MYERS SQUIBB COMPANY
  Company Number: KR-BRISTOL-MYERS SQUIBB COMPANY-2024-178681

PATIENT
  Age: 53 Year
  Sex: Female

DRUGS (3)
  1. REVLIMID [Suspect]
     Active Substance: LENALIDOMIDE
     Indication: Plasma cell myeloma
     Dates: start: 20240611
  2. VELCADE [Concomitant]
     Active Substance: BORTEZOMIB
     Indication: Plasma cell myeloma
     Dosage: DOSE : UNAVAILABLE;     FREQ : UNAVAILABLE
     Dates: start: 20240611
  3. DEXAMETHASONE [Concomitant]
     Active Substance: DEXAMETHASONE
     Indication: Plasma cell myeloma
     Dosage: DOSE : UNAVAILABLE;     FREQ : UNAVAILABLE
     Dates: start: 20240611

REACTIONS (2)
  - Amenorrhoea [Unknown]
  - Human chorionic gonadotropin increased [Not Recovered/Not Resolved]

NARRATIVE: CASE EVENT DATE: 20240101
